FAERS Safety Report 13084794 (Version 1)
Quarter: 2017Q1

REPORT INFORMATION
  Report Type: Spontaneous
  Country: US (occurrence: US)
  Receive Date: 20170104
  Receipt Date: 20170104
  Transmission Date: 20170428
  Serious: Yes (Life-Threatening, Hospitalization)
  Sender: FDA-Public Use
  Company Number: None

PATIENT
  Age: 61 Year
  Sex: Male
  Weight: 110.9 kg

DRUGS (2)
  1. HEPARIN [Suspect]
     Active Substance: HEPARIN SODIUM
     Indication: DEEP VEIN THROMBOSIS
     Dosage: 1800 UNITS PER HOUR IV ?
     Route: 042
     Dates: start: 20161202, end: 20161208
  2. HEPARIN [Suspect]
     Active Substance: HEPARIN SODIUM
     Indication: PULMONARY EMBOLISM
     Dosage: 1800 UNITS PER HOUR IV ?
     Route: 042
     Dates: start: 20161202, end: 20161208

REACTIONS (1)
  - Heparin-induced thrombocytopenia [None]

NARRATIVE: CASE EVENT DATE: 20161208
